FAERS Safety Report 7957325-2 (Version None)
Quarter: 2011Q4

REPORT INFORMATION
  Report Type: 
  Country: None (occurrence: None)
  Receive Date: 20111205
  Receipt Date: 20111003
  Transmission Date: 20120403
  Serious: No
  Sender: FDA-Public Use
  Company Number: US-BAYER-2011-096009

PATIENT
  Age: 65 Year
  Sex: Female
  Weight: 113 kg

DRUGS (4)
  1. PLAQUENIL [Concomitant]
  2. ALEVE (CAPLET) [Suspect]
     Indication: CHEST PAIN
     Dosage: 2 DF, BID
  3. PREDNISONE TAB [Concomitant]
  4. WELLBUTRIN [Concomitant]

REACTIONS (1)
  - NO ADVERSE EVENT [None]
